FAERS Safety Report 8511138-1 (Version None)
Quarter: 2012Q3

REPORT INFORMATION
  Report Type: 
  Country: None (occurrence: None)
  Receive Date: 20120716
  Receipt Date: 20120705
  Transmission Date: 20120928
  Serious: Yes (Other)
  Sender: FDA-Public Use
  Company Number: US-SANOFI-AVENTIS-2012SA048607

PATIENT
  Age: 70 Year
  Sex: Male
  Weight: 96.3 kg

DRUGS (1)
  1. PLAVIX [Suspect]
     Indication: STENT PLACEMENT
     Route: 048
     Dates: start: 20050101

REACTIONS (6)
  - LIMB INJURY [None]
  - HAEMORRHOIDS [None]
  - MUSCULOSKELETAL PAIN [None]
  - CORONARY ARTERY OCCLUSION [None]
  - GASTROINTESTINAL HAEMORRHAGE [None]
  - DEVICE OCCLUSION [None]
